FAERS Safety Report 9822380 (Version 6)
Quarter: 2014Q3

REPORT INFORMATION
  Report Type: Spontaneous
  Country: CH (occurrence: None)
  Receive Date: 20140115
  Receipt Date: 20140721
  Transmission Date: 20150326
  Serious: Yes (Other)
  Sender: FDA-Public Use
  Company Number: 20130763

PATIENT
  Age: 70 Year
  Sex: Female
  Weight: 72 kg

DRUGS (13)
  1. FERINJECT [Suspect]
     Active Substance: FERRIC CARBOXYMALTOSE
     Indication: TRANSFERRIN SATURATION DECREASED
     Dosage: 1000 MG, FOR 10 DAYS INTRAVENOUS DRIP
     Route: 041
     Dates: start: 20130820, end: 20130830
  2. FERINJECT [Suspect]
     Active Substance: FERRIC CARBOXYMALTOSE
     Indication: SERUM FERRITIN DECREASED
     Dosage: 1000 MG, FOR 10 DAYS INTRAVENOUS DRIP
     Route: 041
     Dates: start: 20130820, end: 20130830
  3. FERINJECT [Suspect]
     Active Substance: FERRIC CARBOXYMALTOSE
     Indication: TRANSFERRIN SATURATION DECREASED
     Dosage: 500 MG, FOR 5 DAYS/WK, X 2 WKS INTRAVENOUS DRIP
     Route: 041
     Dates: start: 20130803
  4. FORADIL [Concomitant]
     Active Substance: FORMOTEROL FUMARATE
  5. LEXOMIL (BROMAZEPAM) [Concomitant]
     Active Substance: BROMAZEPAM
  6. CETIRIZINE (CETIRIZINE) [Concomitant]
     Active Substance: CETIRIZINE HYDROCHLORIDE
  7. NASONEX (MOMETASONE FURGATE) [Concomitant]
  8. FERINJECT [Suspect]
     Active Substance: FERRIC CARBOXYMALTOSE
     Indication: SERUM FERRITIN DECREASED
     Dosage: 500 MG, FOR 5 DAYS/WK, X 2 WKS INTRAVENOUS DRIP
     Route: 041
     Dates: start: 20130803
  9. LAMALINE (CAFFEINE, PARACETAMOL, OPIM) [Concomitant]
  10. FERINJECT [Suspect]
     Active Substance: FERRIC CARBOXYMALTOSE
     Indication: IRON DEFICIENCY
     Dosage: 1000 MG, FOR 10 DAYS INTRAVENOUS DRIP
     Route: 041
     Dates: start: 20130820, end: 20130830
  11. FERINJECT [Suspect]
     Active Substance: FERRIC CARBOXYMALTOSE
     Indication: IRON DEFICIENCY
     Dosage: 500 MG, FOR 5 DAYS/WK, X 2 WKS INTRAVENOUS DRIP
     Route: 041
     Dates: start: 20130803
  12. PULMICORT TURBUHALER [Concomitant]
     Active Substance: BUDESONIDE
  13. INEXIUM (ESOMEPRAZOLE MAGNESIUM) (ESOMEPRAZOLE MAGNESIUM) [Concomitant]
     Active Substance: ESOMEPRAZOLE MAGNESIUM

REACTIONS (15)
  - Abasia [None]
  - Lung disorder [None]
  - Back pain [None]
  - Serum ferritin increased [None]
  - Arthralgia [None]
  - Movement disorder [None]
  - Asthenia [None]
  - Fear of death [None]
  - Pulmonary pain [None]
  - Bedridden [None]
  - Overdose [None]
  - Crying [None]
  - Pain [None]
  - Drug prescribing error [None]
  - Pain in extremity [None]

NARRATIVE: CASE EVENT DATE: 201308
